FAERS Safety Report 8131393-X (Version None)
Quarter: 2012Q1

REPORT INFORMATION
  Report Type: 
  Country: None (occurrence: None)
  Receive Date: 20120213
  Receipt Date: 20120203
  Transmission Date: 20120608
  Serious: Yes (Death, Other)
  Sender: FDA-Public Use
  Company Number: RO-BRISTOL-MYERS SQUIBB COMPANY-16384612

PATIENT
  Age: 53 Year
  Sex: Male

DRUGS (5)
  1. DICHLOROACETIC ACID [Suspect]
     Route: 048
     Dates: start: 20120120, end: 20120130
  2. MORPHINE SULFATE [Concomitant]
  3. MS CONTIN [Concomitant]
     Dates: start: 20111209, end: 20120106
  4. ZOLEDRONIC ACID [Concomitant]
     Dosage: 4MG ON 9DEC11,30DEV11 2MG ON 20JAN12
     Dates: start: 20111209
  5. YERVOY [Suspect]
     Indication: MALIGNANT MELANOMA
     Dosage: NO OF INFUSIONS 4
     Route: 042
     Dates: start: 20111118, end: 20120120

REACTIONS (2)
  - DEATH [None]
  - NEOPLASM MALIGNANT [None]
